FAERS Safety Report 4801594-4 (Version None)
Quarter: 2005Q4

REPORT INFORMATION
  Report Type: 
  Country: None (occurrence: None)
  Receive Date: 20051011
  Receipt Date: 20050929
  Transmission Date: 20060501
  Serious: Yes (Disabling, Other)
  Sender: FDA-Public Use
  Company Number: HQWYE765730SEP05

PATIENT
  Age: 62 Year
  Sex: Female
  Weight: 104.42 kg

DRUGS (3)
  1. EFFEXOR XR [Suspect]
     Indication: DEPRESSION
     Dosage: 37.5 MG 1X PER 1 DAY, ORAL; 150 MG 1X OER 1 DAY, ORAL
     Route: 048
     Dates: start: 20040601, end: 20040101
  2. EFFEXOR XR [Suspect]
     Indication: DEPRESSION
     Dosage: 37.5 MG 1X PER 1 DAY, ORAL; 150 MG 1X OER 1 DAY, ORAL
     Route: 048
     Dates: start: 20040101, end: 20050101
  3. ZOLOFT [Concomitant]

REACTIONS (8)
  - ANGER [None]
  - CONFUSIONAL STATE [None]
  - DISORIENTATION [None]
  - HOMICIDAL IDEATION [None]
  - NIGHT SWEATS [None]
  - NIGHTMARE [None]
  - ROAD TRAFFIC ACCIDENT [None]
  - SUICIDAL IDEATION [None]
